FAERS Safety Report 7897591-5 (Version None)
Quarter: 2011Q4

REPORT INFORMATION
  Report Type: 
  Country: None (occurrence: None)
  Receive Date: 20111107
  Receipt Date: 20111101
  Transmission Date: 20120403
  Serious: Yes (Death, Life-Threatening, Hospitalization, Other)
  Sender: FDA-Public Use
  Company Number: GR-JNJFOC-20111101676

PATIENT
  Age: 54 Year
  Sex: Male

DRUGS (1)
  1. LOPERAMIDE HCL [Suspect]
     Indication: DIARRHOEA
     Route: 065

REACTIONS (6)
  - PANCYTOPENIA [None]
  - CIRCULATORY COLLAPSE [None]
  - RENAL FAILURE ACUTE [None]
  - DRUG INEFFECTIVE [None]
  - DIARRHOEA [None]
  - MEGACOLON [None]
